FAERS Safety Report 6822768-7 (Version None)
Quarter: 2010Q3

REPORT INFORMATION
  Report Type: 
  Country: None (occurrence: None)
  Receive Date: 20100706
  Receipt Date: 20100706
  Transmission Date: 20110219
  Serious: No
  Sender: FDA-Public Use
  Company Number: None

PATIENT
  Age: 29 Year
  Sex: Female
  Weight: 68.0396 kg

DRUGS (1)
  1. MONISTAT 7 COMBINATION PACK [Suspect]
     Indication: FUNGAL INFECTION
     Dosage: 5G EACH APPLICATOR NIGHTLY VAG
     Route: 067
     Dates: start: 20100630, end: 20100703

REACTIONS (4)
  - ANTEPARTUM HAEMORRHAGE [None]
  - VAGINAL HAEMORRHAGE [None]
  - VULVOVAGINAL BURNING SENSATION [None]
  - VULVOVAGINAL PRURITUS [None]
